FAERS Safety Report 14459685 (Version 1)
Quarter: 2018Q1

REPORT INFORMATION
  Report Type: Spontaneous
  Country: US (occurrence: US)
  Receive Date: 20180129
  Receipt Date: 20180129
  Transmission Date: 20180509
  Serious: Yes (Life-Threatening)
  Sender: FDA-Public Use
  Company Number: None

PATIENT
  Age: 73 Year
  Weight: 67.5 kg

DRUGS (2)
  1. METOPROLOL TARTRATE. [Suspect]
     Active Substance: METOPROLOL TARTRATE
     Indication: ATRIAL FIBRILLATION
     Dosage: ?          QUANTITY:2 CAPSULE(S);?
     Route: 048
     Dates: end: 20171221
  2. METOPROLOL TARTRATE. [Suspect]
     Active Substance: METOPROLOL TARTRATE
     Indication: HYPERTENSION
     Dosage: ?          QUANTITY:2 CAPSULE(S);?
     Route: 048
     Dates: end: 20171221

REACTIONS (2)
  - Loss of consciousness [None]
  - Hypotension [None]

NARRATIVE: CASE EVENT DATE: 20171220
